FAERS Safety Report 5373531-8 (Version None)
Quarter: 2007Q2

REPORT INFORMATION
  Report Type: 
  Country: None (occurrence: None)
  Receive Date: 20070628
  Receipt Date: 20070622
  Transmission Date: 20071010
  Serious: Yes (Life-Threatening)
  Sender: FDA-Public Use
  Company Number: B0462585A

PATIENT
  Age: 80 Year
  Sex: Male

DRUGS (9)
  1. ZOVIRAX [Suspect]
     Indication: MENINGITIS HERPES
     Dosage: 250MG PER DAY
     Route: 042
     Dates: start: 20070311, end: 20070313
  2. ISOTONIC SODIUM CHLORIDE SOLUTION [Concomitant]
     Indication: MENINGITIS HERPES
     Dosage: 100ML PER DAY
     Route: 042
     Dates: start: 20070311, end: 20070311
  3. LOXONIN [Concomitant]
     Indication: MENINGITIS HERPES
     Route: 048
     Dates: start: 20070311
  4. CALTAN [Concomitant]
     Route: 048
  5. BUSCOPAN [Concomitant]
     Route: 048
  6. GOODMIN [Concomitant]
     Route: 048
  7. TAKEPRON [Concomitant]
     Route: 048
  8. NORVASC [Concomitant]
     Route: 048
  9. FERROUS CITRATE [Concomitant]
     Route: 048

REACTIONS (8)
  - CEREBRAL ATROPHY [None]
  - CEREBRAL INFARCTION [None]
  - CEREBRAL VENTRICLE DILATATION [None]
  - CSF CELL COUNT INCREASED [None]
  - DEPRESSED LEVEL OF CONSCIOUSNESS [None]
  - HYDROCEPHALUS [None]
  - ISCHAEMIA [None]
  - PNEUMONIA ASPIRATION [None]
